FAERS Safety Report 6297545-9 (Version None)
Quarter: 2009Q3

REPORT INFORMATION
  Report Type: 
  Country: None (occurrence: None)
  Receive Date: 20090805
  Receipt Date: 20090728
  Transmission Date: 20100115
  Serious: Yes (Hospitalization)
  Sender: FDA-Public Use
  Company Number: US-ASTRAZENECA-2009UW21398

PATIENT
  Sex: Female

DRUGS (4)
  1. NEXIUM [Suspect]
     Indication: EROSIVE OESOPHAGITIS
     Dosage: MORNING
     Route: 048
  2. PRILOSEC [Suspect]
     Dosage: NIGHT
     Route: 048
  3. ADVAIR HFA [Concomitant]
  4. PREMPRO [Concomitant]

REACTIONS (3)
  - DRUG DOSE OMISSION [None]
  - GASTROOESOPHAGEAL REFLUX DISEASE [None]
  - NECK PAIN [None]
